FAERS Safety Report 7932841-8 (Version None)
Quarter: 2011Q4

REPORT INFORMATION
  Report Type: 
  Country: None (occurrence: None)
  Receive Date: 20111122
  Receipt Date: 20111121
  Transmission Date: 20120403
  Serious: Yes (Disabling)
  Sender: FDA-Public Use
  Company Number: NO-PFIZER INC-2011284004

PATIENT
  Age: 45 Year
  Sex: Male

DRUGS (1)
  1. ARTHROTEC [Suspect]
     Indication: PAIN
     Dosage: 50 MG/0,2 MG, 1X3
     Dates: start: 20070701

REACTIONS (2)
  - ULNAR NEURITIS [None]
  - MEMORY IMPAIRMENT [None]
